FAERS Safety Report 5697895-0 (Version None)
Quarter: 2008Q2

REPORT INFORMATION
  Report Type: 
  Country: None (occurrence: None)
  Receive Date: 20080404
  Receipt Date: 20080404
  Transmission Date: 20081010
  Serious: Yes (Hospitalization)
  Sender: FDA-Public Use
  Company Number: None

PATIENT
  Age: 48 Year
  Sex: Female
  Weight: 106 kg

DRUGS (13)
  1. VELCADE [Suspect]
     Indication: MULTIPLE MYELOMA
     Dosage: 1.6MG/M2 WEEKLY FOR 4
     Dates: start: 20080314, end: 20080321
  2. CCI-779 (TEMSIROLIMUS) [Suspect]
     Indication: MULTIPLE MYELOMA
     Dosage: 25MG WEEKLY
     Dates: start: 20080314, end: 20080321
  3. ACYCLOVIR [Concomitant]
  4. CLARITIN [Concomitant]
  5. COLACE [Concomitant]
  6. COMPAZINE [Concomitant]
  7. OXYCODONE HCL [Concomitant]
  8. OXYCONTIN [Concomitant]
  9. PROTONIX [Concomitant]
  10. PROZAC [Concomitant]
  11. REGLAN [Concomitant]
  12. ZOFRAN [Concomitant]
  13. ZOMETA [Concomitant]

REACTIONS (10)
  - BODY TEMPERATURE INCREASED [None]
  - DIARRHOEA [None]
  - HAEMOPTYSIS [None]
  - HYPOTENSION [None]
  - INFLUENZA LIKE ILLNESS [None]
  - NAUSEA [None]
  - PHARYNGOLARYNGEAL PAIN [None]
  - PRODUCTIVE COUGH [None]
  - VIRAL INFECTION [None]
  - VOMITING [None]
